FAERS Safety Report 8251386-1 (Version None)
Quarter: 2012Q1

REPORT INFORMATION
  Report Type: 
  Country: None (occurrence: None)
  Receive Date: 20120328
  Receipt Date: 20120313
  Transmission Date: 20120608
  Serious: Yes (Hospitalization)
  Sender: FDA-Public Use
  Company Number: DSJ-2012-05037

PATIENT
  Sex: Female

DRUGS (3)
  1. CLONAZEPAM [Concomitant]
  2. BENICAR [Suspect]
     Indication: HYPERTENSION
     Dosage: 40 MG (40 MG, 1IN 1 D), PER ORAL
     Route: 048
  3. HYDROCHLOROTHIAZIDE [Concomitant]

REACTIONS (4)
  - EPISTAXIS [None]
  - BLOOD PRESSURE ABNORMAL [None]
  - MOUTH HAEMORRHAGE [None]
  - HEADACHE [None]
